FAERS Safety Report 19629704 (Version 1)
Quarter: 2021Q3

REPORT INFORMATION
  Report Type: Spontaneous
  Country: FR (occurrence: FR)
  Receive Date: 20210729
  Receipt Date: 20210729
  Transmission Date: 20211014
  Serious: Yes (Hospitalization)
  Sender: FDA-Public Use
  Company Number: FR-ORGANON-O2107FRA002008

PATIENT
  Age: 52 Year
  Sex: Male

DRUGS (6)
  1. ASPIRINE PROTECT [Concomitant]
     Active Substance: ASPIRIN
     Dosage: UNK
  2. BISOPROLOL FUMARATE. [Concomitant]
     Active Substance: BISOPROLOL FUMARATE
     Dosage: UNK
  3. EZETIMIBE. [Suspect]
     Active Substance: EZETIMIBE
     Indication: HYPOCHOLESTEROLAEMIA
     Dosage: 80 MG IN THE EVENING
     Route: 048
     Dates: start: 20171115, end: 20201115
  4. CHOLECALCIFEROL [Concomitant]
     Active Substance: CHOLECALCIFEROL
     Dosage: UNK
  5. RAMIPRIL. [Concomitant]
     Active Substance: RAMIPRIL
     Dosage: UNK
  6. ATORVASTATINE ACCORD [Suspect]
     Active Substance: ATORVASTATIN
     Indication: HYPOCHOLESTEROLAEMIA
     Dosage: 80 MG IN THE EVENING
     Route: 048
     Dates: start: 20171115, end: 20201115

REACTIONS (2)
  - Myositis [Recovering/Resolving]
  - Rhabdomyolysis [Recovering/Resolving]

NARRATIVE: CASE EVENT DATE: 20201204
